FAERS Safety Report 6215411-1 (Version None)
Quarter: 2009Q2

REPORT INFORMATION
  Report Type: 
  Country: None (occurrence: None)
  Receive Date: 20090604
  Receipt Date: 20090508
  Transmission Date: 20091009
  Serious: Yes (Death)
  Sender: FDA-Public Use
  Company Number: GR-MERCK-0905GRC00004

PATIENT
  Age: 17 Year

DRUGS (6)
  1. PRIMAXIN [Suspect]
     Indication: PNEUMONIA
     Route: 042
  2. PRIMAXIN [Suspect]
     Indication: DRUG RESISTANCE
     Route: 042
  3. COLISTIN [Concomitant]
     Indication: PNEUMONIA
     Route: 042
  4. TIGECYCLINE [Concomitant]
     Indication: PNEUMONIA
     Route: 042
  5. TIGECYCLINE [Concomitant]
     Route: 042
  6. AZTREONAM [Concomitant]
     Indication: PNEUMONIA
     Route: 042

REACTIONS (2)
  - DEATH [None]
  - TREATMENT FAILURE [None]
